FAERS Safety Report 8874591 (Version 1)
Quarter: 2012Q4

REPORT INFORMATION
  Report Type: Report from Study
  Country: HK (occurrence: HK)
  Receive Date: 20121030
  Receipt Date: 20121030
  Transmission Date: 20130627
  Serious: Yes (Hospitalization)
  Sender: FDA-Public Use
  Company Number: HK-AMGEN-HKGCT2012007843

PATIENT
  Age: 47 Year
  Sex: Female
  Weight: 58.8 kg

DRUGS (21)
  1. DENOSUMAB [Suspect]
     Indication: BREAST CANCER
     Route: 058
     Dates: start: 20110926
  2. NEUPOGEN [Concomitant]
     Dosage: UNK
     Route: 058
     Dates: start: 20111201, end: 20120118
  3. TAXOTERE [Concomitant]
     Dosage: 166 mg, q3wk
     Route: 042
     Dates: start: 20111129
  4. CALPEROS D3 [Concomitant]
     Dosage: UNK UNK, qd
     Route: 048
     Dates: start: 20110926
  5. ACTIFED [Concomitant]
     Dosage: 10 ml, prn
     Route: 048
     Dates: start: 20111228, end: 20120213
  6. PEPCIDINE [Concomitant]
     Dosage: UNK UNK, bid
     Route: 048
     Dates: start: 20111128, end: 20120214
  7. AUGMENTIN [Concomitant]
     Dosage: 375 mg, UNK
     Dates: start: 20111121, end: 20120206
  8. TARIVID [Concomitant]
     Dosage: 6 Gtt, bid
     Route: 050
     Dates: start: 20111118, end: 20120514
  9. LORATADINE [Concomitant]
     Dosage: 10 mg, prn
     Route: 048
     Dates: start: 20111121
  10. PIPERACILLIN AND TAZOBACTAM [Concomitant]
     Dosage: 4.5 mg, UNK
     Route: 042
     Dates: start: 20111102, end: 20111106
  11. DEXAMETHASONE [Concomitant]
     Dosage: 4 mg, UNK
     Route: 048
     Dates: start: 20111107, end: 20120111
  12. KYTRIL [Concomitant]
     Dosage: 1 mg, UNK
     Route: 042
     Dates: start: 20111107, end: 20120110
  13. SOFRADEX [Concomitant]
     Dosage: UNK
     Route: 050
     Dates: start: 20111104, end: 20111225
  14. EMEND [Concomitant]
     Dosage: 80 mg, UNK
     Route: 048
     Dates: start: 20111107, end: 20111109
  15. PIRITON [Concomitant]
     Dosage: 4 mg, UNK
     Route: 048
     Dates: start: 20111121, end: 20111127
  16. COCILLANA-ETYFIN [Concomitant]
     Dosage: 10 mg, UNK
     Route: 048
     Dates: start: 20111105, end: 20111228
  17. PANADOL [Concomitant]
     Dosage: 500 mg, UNK
     Route: 048
     Dates: start: 20111029, end: 20120424
  18. CIPROFLOXACIN HCL [Concomitant]
     Dosage: 500 mg, UNK
     Route: 048
     Dates: start: 20111205, end: 20120101
  19. PHENSEDYL [Concomitant]
     Dosage: 10 ml, UNK
     Route: 048
     Dates: start: 20120109, end: 20120118
  20. TRAMADOL HCL [Concomitant]
     Dosage: 50 mg, UNK
     Route: 048
     Dates: start: 20120109, end: 20120118
  21. DIFFLAM [Concomitant]
     Dosage: 10 ml, UNK
     Route: 050
     Dates: start: 20111017, end: 20120101

REACTIONS (1)
  - Oedema peripheral [Recovered/Resolved]
